FAERS Safety Report 12874238 (Version 3)
Quarter: 2017Q2

REPORT INFORMATION
  Report Type: Spontaneous
  Country: US (occurrence: FR)
  Receive Date: 20161021
  Receipt Date: 20170413
  Transmission Date: 20170830
  Serious: Yes (Other)
  Sender: FDA-Public Use
  Company Number: PHHY2016FR142690

PATIENT
  Age: 70 Year
  Sex: Female
  Weight: 60 kg

DRUGS (2)
  1. FEMARA [Suspect]
     Active Substance: LETROZOLE
     Indication: BREAST CANCER
     Dosage: UNK UNK, QD
     Route: 065
     Dates: start: 201205, end: 201611
  2. RAMIPRIL. [Concomitant]
     Active Substance: RAMIPRIL

REACTIONS (16)
  - Lip blister [Recovered/Resolved]
  - Muscle tightness [Not Recovered/Not Resolved]
  - Back pain [Unknown]
  - Renal failure [Unknown]
  - Joint stiffness [Not Recovered/Not Resolved]
  - Paraesthesia [Not Recovered/Not Resolved]
  - Pain in extremity [Not Recovered/Not Resolved]
  - Extrasystoles [Unknown]
  - Arrhythmia supraventricular [Recovered/Resolved]
  - Pain in extremity [Recovered/Resolved]
  - Sensory loss [Not Recovered/Not Resolved]
  - Oedema peripheral [Not Recovered/Not Resolved]
  - Bone pain [Not Recovered/Not Resolved]
  - Thrombophlebitis superficial [Unknown]
  - Arterial thrombosis [Unknown]
  - Gait disturbance [Recovered/Resolved]

NARRATIVE: CASE EVENT DATE: 201205
